FAERS Safety Report 8047074-7 (Version None)
Quarter: 2012Q1

REPORT INFORMATION
  Report Type: 
  Country: None (occurrence: None)
  Receive Date: 20120116
  Receipt Date: 20120102
  Transmission Date: 20120608
  Serious: Yes (Death, Life-Threatening, Congenital Anomaly)
  Sender: FDA-Public Use
  Company Number: FR-ELI_LILLY_AND_COMPANY-FR201201000013

PATIENT

DRUGS (6)
  1. TERCIAN [Concomitant]
     Dosage: 0.5 DF, UNK
     Route: 064
  2. ZYPREXA [Suspect]
     Indication: BIPOLAR DISORDER
     Dosage: UNK, BID
     Route: 064
     Dates: start: 20110802, end: 20111101
  3. XANAX [Concomitant]
     Indication: BIPOLAR DISORDER
     Dosage: 2 DF, UNK
     Route: 064
  4. ZYPREXA [Suspect]
     Dosage: UNK, BID
     Route: 064
     Dates: start: 20110802, end: 20111101
  5. XANAX [Concomitant]
     Dosage: 2 DF, UNK
     Route: 064
  6. TERCIAN [Concomitant]
     Indication: BIPOLAR DISORDER
     Dosage: 0.5 DF, UNK
     Route: 064

REACTIONS (3)
  - FOETAL EXPOSURE DURING PREGNANCY [None]
  - ENCEPHALOCELE [None]
  - ANENCEPHALY [None]
